FAERS Safety Report 18104115 (Version 1)
Quarter: 2020Q3

REPORT INFORMATION
  Report Type: Spontaneous
  Country: US (occurrence: US)
  Receive Date: 20200801
  Receipt Date: 20200801
  Transmission Date: 20201103
  Serious: Yes (Hospitalization)
  Sender: FDA-Public Use
  Company Number: None

PATIENT
  Age: 53 Year
  Sex: Female
  Weight: 91.05 kg

DRUGS (7)
  1. VITAMIN C [Concomitant]
     Active Substance: ASCORBIC ACID
  2. ZOLADEX [Concomitant]
     Active Substance: GOSERELIN ACETATE
  3. PROLIA [Concomitant]
     Active Substance: DENOSUMAB
  4. OLMESARTAN [Concomitant]
     Active Substance: OLMESARTAN
  5. ANASTRAZOLE [Concomitant]
     Active Substance: ANASTROZOLE
  6. VITAMIN D [Concomitant]
     Active Substance: VITAMIN D NOS
  7. ASPIRIN. [Suspect]
     Active Substance: ASPIRIN
     Dates: end: 20200710

REACTIONS (5)
  - Headache [None]
  - Dizziness [None]
  - Nausea [None]
  - Intracranial mass [None]
  - Breast cancer metastatic [None]

NARRATIVE: CASE EVENT DATE: 20200622
